FAERS Safety Report 4381259-6 (Version None)
Quarter: 2004Q2

REPORT INFORMATION
  Report Type: 
  Country: None (occurrence: None)
  Receive Date: 20040621
  Receipt Date: 20040203
  Transmission Date: 20050107
  Serious: Yes (Hospitalization, Disabling)
  Sender: FDA-Public Use
  Company Number: FR-BRISTOL-MYERS SQUIBB COMPANY-12494829

PATIENT
  Age: 74 Year
  Sex: Male
  Weight: 70 kg

DRUGS (6)
  1. ELISOR [Suspect]
     Route: 048
     Dates: end: 20031101
  2. COZAAR [Concomitant]
     Dates: start: 19960101
  3. LASILIX [Concomitant]
     Dates: start: 19980401
  4. ALLOPURINOL TAB [Concomitant]
     Dates: start: 19800222
  5. KARDEGIC [Concomitant]
     Dates: start: 19970101
  6. SERMION [Concomitant]
     Dates: start: 19970101

REACTIONS (1)
  - TENDON RUPTURE [None]
